FAERS Safety Report 8614975-8 (Version None)
Quarter: 2012Q3

REPORT INFORMATION
  Report Type: 
  Country: None (occurrence: None)
  Receive Date: 20120823
  Receipt Date: 20120814
  Transmission Date: 20120928
  Serious: Yes (Other)
  Sender: FDA-Public Use
  Company Number: US-009507513-1208USA000417

PATIENT

DRUGS (3)
  1. METFORMIN [Concomitant]
  2. TAMOXIFEN CITRATE [Concomitant]
  3. ZIOPTAN [Suspect]
     Indication: GLAUCOMA
     Dosage: UNK, QD
     Dates: start: 20120630, end: 20120730

REACTIONS (8)
  - DRY EYE [None]
  - EYE PAIN [None]
  - URINARY TRACT INFECTION [None]
  - COUGH [None]
  - OCULAR HYPERAEMIA [None]
  - DRUG INEFFECTIVE [None]
  - EYE PRURITUS [None]
  - APHONIA [None]
